FAERS Safety Report 5277177-1 (Version None)
Quarter: 2007Q1

REPORT INFORMATION
  Report Type: 
  Country: None (occurrence: None)
  Receive Date: 20070322
  Receipt Date: 20070322
  Transmission Date: 20070707
  Serious: Yes (Hospitalization)
  Sender: FDA-Public Use
  Company Number: None

PATIENT
  Age: 25 Year
  Sex: Female
  Weight: 70.3 kg

DRUGS (2)
  1. PRIMAXIN [Suspect]
     Indication: LUNG ABSCESS
     Dosage: 1 GRAM Q12H IV
     Route: 042
  2. PRIMAXIN [Suspect]
     Indication: MYCOBACTERIAL INFECTION
     Dosage: 1 GRAM Q12H IV
     Route: 042

REACTIONS (3)
  - ANGIOEDEMA [None]
  - PHARYNGEAL OEDEMA [None]
  - RASH GENERALISED [None]
